FAERS Safety Report 18427795 (Version 1)
Quarter: 2020Q4

REPORT INFORMATION
  Report Type: Report from Study
  Country: None (occurrence: US)
  Receive Date: 20201026
  Receipt Date: 20201026
  Transmission Date: 20210114
  Serious: Yes (Hospitalization, Other)
  Sender: FDA-Public Use
  Company Number: US-ABBVIE-20K-163-3562601-00

PATIENT
  Age: 62 Year
  Sex: Female
  Weight: 72.64 kg

DRUGS (2)
  1. HUMIRA [Suspect]
     Active Substance: ADALIMUMAB
     Indication: RHEUMATOID ARTHRITIS
     Route: 058
     Dates: start: 20170514, end: 20200904
  2. HUMIRA [Suspect]
     Active Substance: ADALIMUMAB
     Route: 058
     Dates: start: 20201003

REACTIONS (3)
  - Skin cancer [Recovered/Resolved]
  - Foot operation [Recovering/Resolving]
  - Osteoarthritis [Recovering/Resolving]

NARRATIVE: CASE EVENT DATE: 201708
